FAERS Safety Report 5200028-8 (Version None)
Quarter: 2007Q1

REPORT INFORMATION
  Report Type: 
  Country: None (occurrence: None)
  Receive Date: 20070105
  Receipt Date: 20061228
  Transmission Date: 20070707
  Serious: Yes (Other)
  Sender: FDA-Public Use
  Company Number: US-JNJFOC-20060503505

PATIENT
  Sex: Female
  Weight: 48.54 kg

DRUGS (10)
  1. DOXIL [Suspect]
     Route: 042
  2. DOXIL [Suspect]
     Indication: OVARIAN CANCER
     Route: 042
  3. ARANESP [Concomitant]
  4. NEULASTA [Concomitant]
  5. TENORMIN [Concomitant]
     Indication: HYPERTENSION
  6. AVALIDE [Concomitant]
  7. NORVASC [Concomitant]
     Indication: HYPERTENSION
     Route: 048
  8. COUMADIN [Concomitant]
     Route: 048
  9. TOPROL-XL [Concomitant]
     Indication: HYPERTENSION
     Route: 048
  10. AVAPRO [Concomitant]
     Indication: HYPERTENSION
     Route: 048

REACTIONS (5)
  - BLOOD PRESSURE INCREASED [None]
  - PALMAR-PLANTAR ERYTHRODYSAESTHESIA SYNDROME [None]
  - RENAL FAILURE [None]
  - THROMBOTIC MICROANGIOPATHY [None]
  - WEIGHT DECREASED [None]
